FAERS Safety Report 16034512 (Version 3)
Quarter: 2020Q1

REPORT INFORMATION
  Report Type: Spontaneous
  Country: US (occurrence: US)
  Receive Date: 20190305
  Receipt Date: 20200226
  Transmission Date: 20200409
  Serious: Yes (Other)
  Sender: FDA-Public Use
  Company Number: US-PFIZER INC-2019092152

PATIENT
  Age: 66 Year
  Sex: Female

DRUGS (4)
  1. SULFASALAZINE. [Concomitant]
     Active Substance: SULFASALAZINE
     Dates: start: 201910
  2. XELJANZ XR [Suspect]
     Active Substance: TOFACITINIB CITRATE
     Indication: RHEUMATOID ARTHRITIS
     Dosage: 11 MG, 1X/DAY
     Dates: start: 2015
  3. DULOXETINE. [Concomitant]
     Active Substance: DULOXETINE
     Dates: start: 201911
  4. NAPROXEN. [Concomitant]
     Active Substance: NAPROXEN
     Dates: start: 2011

REACTIONS (6)
  - Peripheral swelling [Unknown]
  - Fibromyalgia [Unknown]
  - Expired product administered [Unknown]
  - Gait disturbance [Unknown]
  - Arthralgia [Unknown]
  - Joint swelling [Unknown]
